FAERS Safety Report 21226950 (Version 1)
Quarter: 2022Q3

REPORT INFORMATION
  Report Type: Spontaneous
  Country: US (occurrence: None)
  Receive Date: 20220817
  Receipt Date: 20220817
  Transmission Date: 20221027
  Serious: Yes (Other)
  Sender: FDA-Public Use
  Company Number: None

PATIENT
  Age: 52 Year
  Sex: Female

DRUGS (2)
  1. TALTZ [Suspect]
     Active Substance: IXEKIZUMAB
     Indication: Psoriasis
     Dosage: FREQUENCY : ONCE;?
     Route: 058
     Dates: start: 20220726, end: 20220726
  2. TALTZ [Suspect]
     Active Substance: IXEKIZUMAB
     Indication: Psoriatic arthropathy

REACTIONS (7)
  - Burning sensation [None]
  - Erythema [None]
  - Swelling face [None]
  - Cough [None]
  - Dyspnoea [None]
  - Injection site erythema [None]
  - Therapy cessation [None]

NARRATIVE: CASE EVENT DATE: 20220726
